FAERS Safety Report 6461072-6 (Version None)
Quarter: 2009Q4

REPORT INFORMATION
  Report Type: 
  Country: None (occurrence: None)
  Receive Date: 20091130
  Receipt Date: 20091119
  Transmission Date: 20100525
  Serious: Yes (Hospitalization)
  Sender: FDA-Public Use
  Company Number: B0606110A

PATIENT
  Age: 81 Year
  Sex: Female

DRUGS (10)
  1. ARIXTRA [Suspect]
     Indication: THROMBOSIS PROPHYLAXIS
     Route: 058
     Dates: start: 20090415, end: 20090521
  2. KARDEGIC [Suspect]
     Dosage: 75MG PER DAY
     Route: 048
  3. PLAVIX [Suspect]
     Indication: DRUG USE FOR UNKNOWN INDICATION
     Dosage: 75MG TWICE PER DAY
     Route: 048
     Dates: start: 20090415, end: 20090519
  4. TRIATEC [Concomitant]
     Dosage: 1.25MG PER DAY
     Route: 048
     Dates: start: 20090511, end: 20090515
  5. TRIATEC [Concomitant]
     Dosage: 2.5MG PER DAY
     Route: 048
     Dates: start: 20090515
  6. AMLODIPINE [Concomitant]
     Dosage: 10MG PER DAY
     Route: 048
  7. CARDENSIEL [Concomitant]
     Dosage: 5MG PER DAY
     Route: 048
  8. DIAMICRON [Concomitant]
     Dosage: 30MG TWICE PER DAY
     Route: 048
  9. SEROPLEX [Concomitant]
     Indication: DEPRESSION
     Dosage: 5MG PER DAY
     Route: 048
  10. FORLAX [Concomitant]
     Indication: DRUG USE FOR UNKNOWN INDICATION
     Dosage: 10G PER DAY
     Route: 048

REACTIONS (4)
  - ANAEMIA [None]
  - HAEMATOMA [None]
  - INCORRECT DRUG ADMINISTRATION DURATION [None]
  - OFF LABEL USE [None]
